FAERS Safety Report 6643853-9 (Version None)
Quarter: 2010Q1

REPORT INFORMATION
  Report Type: 
  Country: None (occurrence: None)
  Receive Date: 20100322
  Receipt Date: 20100312
  Transmission Date: 20100710
  Serious: Yes (Hospitalization)
  Sender: FDA-Public Use
  Company Number: DE-ABBOTT-10P-062-0631836-00

PATIENT
  Sex: Male

DRUGS (2)
  1. KALETRA [Suspect]
     Indication: HIV INFECTION
  2. TRUVADA [Concomitant]
     Indication: HIV INFECTION

REACTIONS (1)
  - HOSPITALISATION [None]
